FAERS Safety Report 4676584-5 (Version None)
Quarter: 2005Q2

REPORT INFORMATION
  Report Type: 
  Country: None (occurrence: None)
  Receive Date: 20050527
  Receipt Date: 20050121
  Transmission Date: 20051028
  Serious: Yes (Hospitalization, Disabling)
  Sender: FDA-Public Use
  Company Number: US-ROCHE-393371

PATIENT
  Age: 26 Year
  Sex: Male

DRUGS (3)
  1. ACCUTANE [Suspect]
     Indication: ACNE
     Route: 048
     Dates: start: 19970815, end: 19971012
  2. ACCUTANE [Suspect]
     Route: 048
     Dates: start: 19971013, end: 19980215
  3. KENALOG [Concomitant]
     Indication: ACNE
     Dates: start: 19940615, end: 19970615

REACTIONS (15)
  - ABDOMINAL PAIN [None]
  - COLITIS [None]
  - COLITIS ULCERATIVE [None]
  - DEPRESSION [None]
  - DIARRHOEA [None]
  - DRY SKIN [None]
  - EPISTAXIS [None]
  - FIBROMYALGIA [None]
  - GASTROINTESTINAL DISORDER [None]
  - HAEMATOCHEZIA [None]
  - HYPERTRIGLYCERIDAEMIA [None]
  - INFLAMMATORY BOWEL DISEASE [None]
  - INTESTINAL HAEMORRHAGE [None]
  - MULTI-ORGAN DISORDER [None]
  - ROTATOR CUFF SYNDROME [None]
